FAERS Safety Report 18072670 (Version 6)
Quarter: 2020Q3

REPORT INFORMATION
  Report Type: Spontaneous
  Country: US (occurrence: US)
  Receive Date: 20200727
  Receipt Date: 20200907
  Transmission Date: 20201103
  Serious: Yes (Other)
  Sender: FDA-Public Use
  Company Number: US-SA-2017SA263525

PATIENT

DRUGS (3)
  1. APIDRA [Suspect]
     Active Substance: INSULIN GLULISINE
     Indication: DIABETES MELLITUS INADEQUATE CONTROL
     Dosage: 22 IU, Q12H
     Route: 065
  2. LANTUS [Concomitant]
     Active Substance: INSULIN GLARGINE
     Dosage: UNK
     Route: 065
  3. APIDRA [Suspect]
     Active Substance: INSULIN GLULISINE
     Indication: TYPE 1 DIABETES MELLITUS
     Dosage: 10?14 IU
     Route: 058
     Dates: start: 2017

REACTIONS (5)
  - Blood glucose increased [Unknown]
  - Product storage error [Unknown]
  - Diabetes mellitus inadequate control [Unknown]
  - Therapeutic response decreased [Unknown]
  - Vision blurred [Unknown]
